FAERS Safety Report 7591876-8 (Version None)
Quarter: 2011Q3

REPORT INFORMATION
  Report Type: 
  Country: None (occurrence: None)
  Receive Date: 20110706
  Receipt Date: 20110620
  Transmission Date: 20111222
  Serious: Yes (Other)
  Sender: FDA-Public Use
  Company Number: US-BAYER-201032864NA

PATIENT
  Age: 29 Year
  Sex: Female
  Weight: 66.667 kg

DRUGS (3)
  1. YAZ [Suspect]
     Indication: PREMENSTRUAL SYNDROME
     Dates: start: 20060910, end: 20091130
  2. DENAVIR [Concomitant]
     Indication: HERPES SIMPLEX
     Dosage: UNK
     Route: 061
     Dates: start: 20060101
  3. YAZ [Suspect]
     Dosage: UNK
     Dates: start: 20070101, end: 20091101

REACTIONS (5)
  - NAUSEA [None]
  - CHOLELITHIASIS [None]
  - CHOLECYSTITIS CHRONIC [None]
  - VOMITING [None]
  - ABDOMINAL PAIN UPPER [None]
